FAERS Safety Report 7806093-3 (Version None)
Quarter: 2011Q4

REPORT INFORMATION
  Report Type: 
  Country: None (occurrence: None)
  Receive Date: 20111011
  Receipt Date: 20111005
  Transmission Date: 20120403
  Serious: Yes (Death, Other)
  Sender: FDA-Public Use
  Company Number: US-PFIZER INC-2009283756

PATIENT
  Sex: Male

DRUGS (5)
  1. BUSPIRONE [Concomitant]
     Indication: ANXIETY DISORDER
     Dosage: UNK
     Dates: start: 20020101, end: 20071001
  2. PRAVASTATIN [Concomitant]
     Indication: BLOOD CHOLESTEROL
     Dosage: UNK
     Dates: start: 20070501, end: 20071001
  3. CIALIS [Concomitant]
     Indication: ERECTILE DYSFUNCTION
     Dosage: UNK
     Dates: start: 20040401, end: 20071001
  4. WELLBUTRIN [Concomitant]
     Indication: DEPRESSION
     Dosage: UNK
     Dates: start: 20060701, end: 20071001
  5. CHANTIX [Suspect]
     Indication: SMOKING CESSATION THERAPY
     Dosage: STARTER PACK, CONTINUATION PACK
     Route: 048
     Dates: start: 20070601, end: 20070101

REACTIONS (9)
  - DEPRESSION [None]
  - HOMICIDAL IDEATION [None]
  - MOOD ALTERED [None]
  - ABNORMAL BEHAVIOUR [None]
  - COMPLETED SUICIDE [None]
  - AGITATION [None]
  - AGGRESSION [None]
  - PALPITATIONS [None]
  - ABNORMAL DREAMS [None]
